FAERS Safety Report 5670116-0 (Version None)
Quarter: 2008Q1

REPORT INFORMATION
  Report Type: 
  Country: None (occurrence: None)
  Receive Date: 20080312
  Receipt Date: 20080306
  Transmission Date: 20080703
  Serious: Yes (Death, Life-Threatening, Hospitalization)
  Sender: FDA-Public Use
  Company Number: 083-C5013-08011351

PATIENT
  Age: 59 Year
  Sex: Male

DRUGS (10)
  1. CC-5013 (LENALIDOMIDE)             (CAPSULES) [Suspect]
     Indication: MYELOMA RECURRENCE
     Dosage: 10 MG, DAILY, ORAL
     Route: 048
     Dates: start: 20080103, end: 20080121
  2. THALOMID [Suspect]
     Indication: MYELOMA RECURRENCE
     Dosage: 100 MG, DAILY, ORAL
     Route: 048
     Dates: start: 20080103, end: 20080121
  3. MELPHALAN           (MELPHALAN) [Suspect]
     Indication: MYELOMA RECURRENCE
     Dosage: 0.18 MG/KG, DAILY, ORAL
     Route: 048
     Dates: start: 20080103, end: 20080121
  4. PREDNISONE TAB [Suspect]
     Indication: MYELOMA RECURRENCE
     Dosage: 2 MG/KG, DAILY, ORAL
     Route: 048
     Dates: start: 20080103, end: 20080121
  5. EPREX [Concomitant]
  6. CARDIO ASA                 (ACETYLSALICYLIC ACID) [Concomitant]
  7. TRAMADOL HCL [Concomitant]
  8. LAEVOLAC      (LACTULOSE) [Concomitant]
  9. BIMIXIN       (NEBACETIN) [Concomitant]
  10. YOVIS          (LACTOBACILLUS FERMENTUM [Concomitant]

REACTIONS (4)
  - GASTROENTERITIS [None]
  - IMMUNODEFICIENCY [None]
  - MENINGITIS [None]
  - NEUTROPENIA [None]
